FAERS Safety Report 15951150 (Version 1)
Quarter: 2019Q1

REPORT INFORMATION
  Report Type: Spontaneous
  Country: BR (occurrence: BR)
  Receive Date: 20190211
  Receipt Date: 20190211
  Transmission Date: 20190417
  Serious: Yes (Other)
  Sender: FDA-Public Use
  Company Number: BR-PFIZER INC-2019055108

PATIENT
  Sex: Female

DRUGS (2)
  1. ALPRAZOLAM. [Suspect]
     Active Substance: ALPRAZOLAM
     Dosage: 2 DF, DAILY (1 TABLET IN THE MORNING AND 1 TABLET IN THE AFTERNOON)
  2. DONAREN [Suspect]
     Active Substance: TRAZODONE HYDROCHLORIDE
     Dosage: 2 DF, DAILY (1 TABLET IN THE MORNING AND 1 TABLET AT NIGHT)

REACTIONS (4)
  - Abdominal pain [Unknown]
  - Uterine pain [Unknown]
  - Cataract [Unknown]
  - Retinal detachment [Unknown]

NARRATIVE: CASE EVENT DATE: 2017
